FAERS Safety Report 10175942 (Version 1)
Quarter: 2014Q2

REPORT INFORMATION
  Report Type: Spontaneous
  Country: US (occurrence: None)
  Receive Date: 20140425
  Receipt Date: 20140425
  Transmission Date: 20141212
  Serious: No
  Sender: FDA-Public Use
  Company Number: AP356-00373-SPO-US

PATIENT
  Age: 65 Year
  Sex: Female
  Weight: 84 kg

DRUGS (4)
  1. BELVIQ [Suspect]
     Indication: WEIGHT DECREASED
     Dosage: 10 MG/DAY UNKNOWN, ORAL
     Route: 048
     Dates: start: 20130920, end: 20131203
  2. LISINOPRIL/HCTZ (PRINZIDE) [Concomitant]
  3. SYNTHROID (LEVOTHYROXINE SODIUM) [Concomitant]
  4. FAMOTIDINE (FAMOTIDINE) [Concomitant]

REACTIONS (1)
  - Drug effect decreased [None]
